FAERS Safety Report 19425978 (Version 4)
Quarter: 2021Q3

REPORT INFORMATION
  Report Type: Report from Study
  Country: US (occurrence: US)
  Receive Date: 20210616
  Receipt Date: 20210824
  Transmission Date: 20211014
  Serious: Yes (Hospitalization, Other)
  Sender: FDA-Public Use
  Company Number: US-BAYER-2021-156205

PATIENT
  Age: 88 Year
  Sex: Female
  Weight: 74.83 kg

DRUGS (4)
  1. ADEMPAS [Suspect]
     Active Substance: RIOCIGUAT
     Indication: PULMONARY ARTERIAL HYPERTENSION
     Dosage: UNK
     Dates: start: 20210521
  2. ELIQUIS [Concomitant]
     Active Substance: APIXABAN
     Dosage: UNK
  3. ADEMPAS [Suspect]
     Active Substance: RIOCIGUAT
     Indication: PULMONARY ARTERIAL HYPERTENSION
     Dosage: 1 MG, TID
     Route: 048
     Dates: start: 2021, end: 2021
  4. DILTIAZEM. [Concomitant]
     Active Substance: DILTIAZEM
     Dosage: UNK

REACTIONS (12)
  - Constipation [Not Recovered/Not Resolved]
  - Peripheral swelling [None]
  - Abdominal distension [None]
  - Wheezing [None]
  - Joint swelling [None]
  - Drug intolerance [None]
  - Anal incontinence [None]
  - Cough [None]
  - Nausea [None]
  - Renal failure [None]
  - Gastrointestinal haemorrhage [None]
  - Gastrointestinal sounds abnormal [None]

NARRATIVE: CASE EVENT DATE: 2021
